FAERS Safety Report 6713409-8 (Version None)
Quarter: 2010Q2

REPORT INFORMATION
  Report Type: 
  Country: None (occurrence: None)
  Receive Date: 20100506
  Receipt Date: 20100429
  Transmission Date: 20101027
  Serious: Yes (Other)
  Sender: FDA-Public Use
  Company Number: RO-ROCHE-700400

PATIENT
  Sex: Male
  Weight: 70 kg

DRUGS (1)
  1. PEGINTERFERON ALFA-2A [Suspect]
     Indication: DRUG USE FOR UNKNOWN INDICATION
     Route: 065

REACTIONS (1)
  - ATRIAL FIBRILLATION [None]
